FAERS Safety Report 23595548 (Version 1)
Quarter: 2024Q1

REPORT INFORMATION
  Report Type: Spontaneous
  Country: US (occurrence: US)
  Receive Date: 20240305
  Receipt Date: 20240305
  Transmission Date: 20240410
  Serious: Yes (Other)
  Sender: FDA-Public Use
  Company Number: US-STRIDES ARCOLAB LIMITED-2023SP017820

PATIENT
  Age: 49 Year
  Sex: Female

DRUGS (5)
  1. PREDNISOLONE [Suspect]
     Active Substance: PREDNISOLONE
     Indication: Prophylaxis
     Dosage: 20 MILLIGRAM PER DAY, BEFORE AND AFTER IODINE RADIOACTIVE TREATMENT
     Route: 048
  2. PREDNISOLONE [Suspect]
     Active Substance: PREDNISOLONE
     Dosage: LOW DOSE
     Route: 048
  3. SODIUM IODIDE I-131 [Concomitant]
     Active Substance: SODIUM IODIDE I-131
     Indication: Graves^ disease
     Dosage: 30 MILLICURIE, FIRST DOSE
     Route: 065
  4. SODIUM IODIDE I-131 [Concomitant]
     Active Substance: SODIUM IODIDE I-131
     Dosage: 20 MILLICURIE, SECOND DOSE, AFTER 11?MONTHS OF RECEIVING 1ST DOSE
     Route: 065
  5. METHYLPREDNISOLONE [Concomitant]
     Active Substance: METHYLPREDNISOLONE
     Indication: Graves^ disease
     Dosage: UNK
     Route: 065

REACTIONS (2)
  - Endocrine ophthalmopathy [Unknown]
  - Drug ineffective [Unknown]
